FAERS Safety Report 5533003-4 (Version None)
Quarter: 2007Q4

REPORT INFORMATION
  Report Type: 
  Country: None (occurrence: None)
  Receive Date: 20071204
  Receipt Date: 20071128
  Transmission Date: 20080405
  Serious: Yes (Other)
  Sender: FDA-Public Use
  Company Number: PHBS2007BR20099

PATIENT
  Age: 37 Year
  Sex: Male
  Weight: 72 kg

DRUGS (1)
  1. CLORETO DE POTASSIO [Suspect]
     Indication: BLOOD POTASSIUM DECREASED
     Dosage: 1 TABLET/DAY
     Route: 048
     Dates: start: 19971101, end: 20070801

REACTIONS (4)
  - ASTHENIA [None]
  - BEDRIDDEN [None]
  - FEELING ABNORMAL [None]
  - HYPOKINESIA [None]
